FAERS Safety Report 4502427-6 (Version None)
Quarter: 2004Q4

REPORT INFORMATION
  Report Type: 
  Country: None (occurrence: None)
  Receive Date: 20041110
  Receipt Date: 20041025
  Transmission Date: 20050328
  Serious: Yes (Other)
  Sender: FDA-Public Use
  Company Number: 210157

PATIENT
  Age: 44 Year
  Sex: Female
  Weight: 60 kg

DRUGS (3)
  1. HERCEPTIN [Suspect]
     Indication: BREAST CANCER METASTATIC
     Dosage: 4 MG/KG, SINGLE, INTRAVENOUS
     Route: 042
     Dates: start: 20040920
  2. PACLITAXEL [Suspect]
     Dosage: SEE IMAGE
     Route: 042
     Dates: start: 20040920
  3. ALENDRONIC ACID (ALENDRONIC ACID) [Concomitant]

REACTIONS (3)
  - NEUTROPENIC SEPSIS [None]
  - PYREXIA [None]
  - STOMATITIS [None]
